FAERS Safety Report 8973675 (Version 1)
Quarter: 2012Q4

REPORT INFORMATION
  Report Type: 
  Country: US (occurrence: US)
  Receive Date: 20121218
  Receipt Date: 20121218
  Transmission Date: 20130627
  Serious: No
  Sender: FDA-Public Use
  Company Number: US-BRISTOL-MYERS SQUIBB COMPANY-16917585

PATIENT
  Age: 65 Year
  Sex: Female

DRUGS (5)
  1. ABILIFY [Suspect]
     Indication: DEPRESSION
     Dosage: Std couple of years ago  10mg than stopped
resd with 2mg abt 9 months ago; Dose increase:4mg, 5mg
  2. PROZAC [Suspect]
  3. LAMICTAL [Suspect]
  4. RISPERDAL [Suspect]
  5. THYROXINE [Concomitant]

REACTIONS (3)
  - Fall [Unknown]
  - Hallucination [Unknown]
  - Paranoia [Unknown]
